FAERS Safety Report 9274563 (Version 2)
Quarter: 2013Q2

REPORT INFORMATION
  Report Type: Spontaneous
  Country: AU (occurrence: AU)
  Receive Date: 20130507
  Receipt Date: 20130607
  Transmission Date: 20140414
  Serious: Yes (Other)
  Sender: FDA-Public Use
  Company Number: AU-AMGEN-AUSSP2013030475

PATIENT
  Age: 66 Year
  Sex: Female

DRUGS (7)
  1. PROLIA [Suspect]
     Indication: OSTEOPOROSIS POSTMENOPAUSAL
     Dosage: 60 MG, Q6MO
     Dates: start: 20111124
  2. PROLIA [Suspect]
     Dosage: UNK
     Dates: start: 201211
  3. PROLIA [Suspect]
     Dosage: UNK
     Dates: start: 201305
  4. CALCIUM [Concomitant]
     Indication: OSTEOPENIA
  5. VITAMIN D                          /00107901/ [Concomitant]
     Indication: OSTEOPENIA
  6. ENDEP [Concomitant]
     Indication: CYSTITIS NONINFECTIVE
  7. TRAMADOL [Concomitant]
     Indication: PELVIC PAIN

REACTIONS (3)
  - Impaired healing [Recovered/Resolved]
  - Condition aggravated [Unknown]
  - Back pain [Recovered/Resolved]
